FAERS Safety Report 6959089-8 (Version None)
Quarter: 2010Q3

REPORT INFORMATION
  Report Type: 
  Country: None (occurrence: None)
  Receive Date: 20100825
  Receipt Date: 20100819
  Transmission Date: 20110219
  Serious: Yes (Life-Threatening, Hospitalization, Other)
  Sender: FDA-Public Use
  Company Number: 2010SP041567

PATIENT
  Age: 51 Year
  Sex: Female

DRUGS (6)
  1. NUVARING [Suspect]
     Indication: CONTRACEPTION
     Dosage: VAG
     Route: 067
     Dates: start: 20060101, end: 20100601
  2. CINAPRO [Concomitant]
  3. AVONEX [Concomitant]
  4. LISINOPRIL [Concomitant]
  5. VITAMIN D [Concomitant]
  6. CALCIUM [Concomitant]

REACTIONS (5)
  - FALL [None]
  - HEAD INJURY [None]
  - PULMONARY EMBOLISM [None]
  - SUBDURAL HAEMATOMA [None]
  - THROMBOSIS [None]
